FAERS Safety Report 22680725 (Version 2)
Quarter: 2023Q4

REPORT INFORMATION
  Report Type: Spontaneous
  Country: US (occurrence: US)
  Receive Date: 20230707
  Receipt Date: 20231002
  Transmission Date: 20240110
  Serious: Yes (Hospitalization, Other)
  Sender: FDA-Public Use
  Company Number: US-AMNEAL PHARMACEUTICALS-2023-AMRX-02293

PATIENT
  Sex: Female
  Weight: 11.701 kg

DRUGS (2)
  1. VIGABATRIN [Suspect]
     Active Substance: VIGABATRIN
     Indication: Infantile spasms
     Dosage: 500 MG PER PACKET, BID
     Route: 048
     Dates: start: 20230617
  2. VIGABATRIN [Suspect]
     Active Substance: VIGABATRIN
     Indication: Epilepsy

REACTIONS (3)
  - Heart rate increased [Unknown]
  - Oxygen saturation decreased [Unknown]
  - Epilepsy [Unknown]
